FAERS Safety Report 23381985 (Version 1)
Quarter: 2024Q1

REPORT INFORMATION
  Report Type: Spontaneous
  Country: US (occurrence: US)
  Receive Date: 20240109
  Receipt Date: 20240109
  Transmission Date: 20240409
  Serious: No
  Sender: FDA-Public Use
  Company Number: US-BRISTOL-MYERS SQUIBB COMPANY-2023-170165

PATIENT
  Sex: Female

DRUGS (1)
  1. ABRAXANE [Suspect]
     Active Substance: PACLITAXEL
     Indication: Breast cancer metastatic
     Dosage: DOSE : INFORMATION UNAVAILABLE;     FREQ : 3 WEEKS ON AND ONE WEEK OFF (AS RELAYED BY PATIENT)

REACTIONS (1)
  - Off label use [Unknown]
